FAERS Safety Report 11900242 (Version 1)
Quarter: 2016Q1

REPORT INFORMATION
  Report Type: Report from Study
  Country: US (occurrence: US)
  Receive Date: 20160108
  Receipt Date: 20160108
  Transmission Date: 20160526
  Serious: No
  Sender: FDA-Public Use
  Company Number: US-ABBVIE-15P-163-1448694-00

PATIENT
  Age: 69 Year
  Sex: Female

DRUGS (2)
  1. RIBAVIRIN. [Suspect]
     Active Substance: RIBAVIRIN
     Indication: CHRONIC HEPATITIS C
     Route: 048
     Dates: start: 20150122, end: 20150416
  2. VIEKIRA PAK [Suspect]
     Active Substance: DASABUVIR\OMBITASVIR\PARITAPREVIR\RITONAVIR
     Indication: CHRONIC HEPATITIS C
     Route: 048
     Dates: start: 20150122, end: 20150414

REACTIONS (12)
  - Anger [Unknown]
  - Skin discolouration [Unknown]
  - Dyspnoea exertional [Unknown]
  - Dizziness [Unknown]
  - Fatigue [Unknown]
  - Abdominal distension [Unknown]
  - Muscle spasms [Unknown]
  - Dry skin [Unknown]
  - Abnormal faeces [Unknown]
  - Nausea [Unknown]
  - Muscle spasms [Unknown]
  - Pruritus [Unknown]

NARRATIVE: CASE EVENT DATE: 20150123
